FAERS Safety Report 5920957-7 (Version None)
Quarter: 2008Q4

REPORT INFORMATION
  Report Type: 
  Country: None (occurrence: None)
  Receive Date: 20081015
  Receipt Date: 20081015
  Transmission Date: 20090506
  Serious: Yes (Other)
  Sender: FDA-Public Use
  Company Number: None

PATIENT
  Age: 28 Year
  Sex: Female
  Weight: 83.9154 kg

DRUGS (1)
  1. MIRENA [Suspect]
     Indication: CONTRACEPTION
     Dosage: INTRA-UTERINE
     Route: 015
     Dates: start: 20080301, end: 20081014

REACTIONS (6)
  - ABDOMINAL DISTENSION [None]
  - DEPRESSION [None]
  - FOOT FRACTURE [None]
  - OVARIAN CYST [None]
  - SUPPRESSED LACTATION [None]
  - WEIGHT INCREASED [None]
